FAERS Safety Report 24750838 (Version 1)
Quarter: 2024Q4

REPORT INFORMATION
  Report Type: Spontaneous
  Country: FR (occurrence: FR)
  Receive Date: 20241219
  Receipt Date: 20241219
  Transmission Date: 20250114
  Serious: Yes (Hospitalization, Other)
  Sender: JUBILANT
  Company Number: None

PATIENT
  Age: 25 Year
  Sex: Male

DRUGS (3)
  1. LEVOFLOXACIN [Suspect]
     Active Substance: LEVOFLOXACIN
     Indication: Cerebrospinal fluid leakage
     Dosage: 750 MG, ONCE PER DAY
     Route: 048
  2. HYDROXYZINE [Concomitant]
     Active Substance: HYDROXYZINE HYDROCHLORIDE
     Indication: Cerebrospinal fluid leakage
     Dosage: UNK, UNK
     Route: 065
  3. OXYBUTYNIN [Concomitant]
     Active Substance: OXYBUTYNIN
     Indication: Cerebrospinal fluid leakage
     Dosage: UNK, UNK
     Route: 065

REACTIONS (3)
  - Agitation [Recovering/Resolving]
  - Muscle contractions involuntary [Recovering/Resolving]
  - Toxicity to various agents [Recovering/Resolving]
